FAERS Safety Report 5126053-3 (Version None)
Quarter: 2006Q4

REPORT INFORMATION
  Report Type: 
  Country: None (occurrence: None)
  Receive Date: 20061010
  Receipt Date: 20061010
  Transmission Date: 20070319
  Serious: Yes (Life-Threatening, Hospitalization, Other)
  Sender: FDA-Public Use
  Company Number: None

PATIENT
  Age: 45 Year
  Sex: Male
  Weight: 108.8633 kg

DRUGS (2)
  1. OMPROZOLE 40 [Suspect]
     Indication: GASTROOESOPHAGEAL REFLUX DISEASE
     Dosage: 40 DAILY
     Dates: start: 20060601, end: 20060901
  2. NEXIUM [Suspect]
     Indication: GASTROOESOPHAGEAL REFLUX DISEASE
     Dosage: 40 DAILY
     Dates: start: 20020802, end: 20060510

REACTIONS (4)
  - CONDITION AGGRAVATED [None]
  - EOSINOPHILIC FASCIITIS [None]
  - GASTROOESOPHAGEAL REFLUX DISEASE [None]
  - PHARYNGEAL HAEMORRHAGE [None]
